FAERS Safety Report 15642261 (Version 1)
Quarter: 2018Q4

REPORT INFORMATION
  Report Type: Spontaneous
  Country: DE (occurrence: DE)
  Receive Date: 20181121
  Receipt Date: 20181121
  Transmission Date: 20190205
  Serious: Yes (Other)
  Sender: FDA-Public Use
  Company Number: DE-BAYER-2018-214476

PATIENT
  Age: 43 Year
  Sex: Female
  Weight: 62 kg

DRUGS (1)
  1. MIRENA [Suspect]
     Active Substance: LEVONORGESTREL
     Dosage: 20 MCG/24HR, CONT
     Route: 015
     Dates: start: 201804

REACTIONS (8)
  - Amenorrhoea [None]
  - Insomnia [None]
  - Breast cyst [None]
  - Mood swings [None]
  - Dizziness [None]
  - Abnormal weight gain [None]
  - Alopecia [None]
  - Arrhythmia [None]
